FAERS Safety Report 5759154-7 (Version None)
Quarter: 2008Q2

REPORT INFORMATION
  Report Type: 
  Country: None (occurrence: None)
  Receive Date: 20080602
  Receipt Date: 20080522
  Transmission Date: 20081010
  Serious: Yes (Other)
  Sender: FDA-Public Use
  Company Number: 2008AL005926

PATIENT
  Age: 2 Year
  Sex: Male

DRUGS (5)
  1. IBUPROFEN [Suspect]
     Indication: ARTHRITIS
     Dosage: 200 MG; BID; PO
     Route: 048
     Dates: start: 20040101
  2. METHOTREXATE [Concomitant]
  3. PIROXICAM [Concomitant]
  4. TRIAMCINOLONE [Concomitant]
  5. IRON [Concomitant]

REACTIONS (2)
  - ALANINE AMINOTRANSFERASE INCREASED [None]
  - SPONDYLITIS [None]
